FAERS Safety Report 9808395 (Version 3)
Quarter: 2014Q2

REPORT INFORMATION
  Report Type: Spontaneous
  Country: US (occurrence: US)
  Receive Date: 20140110
  Receipt Date: 20140403
  Transmission Date: 20141212
  Serious: Yes (Hospitalization)
  Sender: FDA-Public Use
  Company Number: US-BAXTER-2014BAX000085

PATIENT
  Sex: Female

DRUGS (6)
  1. DIANEAL LOW CALCIUM [Suspect]
     Indication: PERITONEAL DIALYSIS
     Route: 033
     Dates: start: 2013
  2. DIANEAL LOW CALCIUM [Suspect]
     Indication: CARDIAC FAILURE
  3. DIANEAL LOW CALCIUM [Suspect]
     Indication: PERITONEAL DIALYSIS
     Dosage: 4 OR 5 EXCHANGES
     Route: 033
     Dates: start: 2013
  4. TORSEMIDE [Suspect]
     Indication: RENAL FAILURE
     Route: 048
  5. TORSEMIDE [Suspect]
     Indication: CARDIAC FAILURE
     Route: 048
  6. TORSEMIDE [Suspect]
     Route: 048

REACTIONS (5)
  - Fall [Recovering/Resolving]
  - Hip fracture [Recovering/Resolving]
  - Diaphragmatic rupture [Unknown]
  - Pleural effusion [Recovering/Resolving]
  - Fluid overload [Recovering/Resolving]
